FAERS Safety Report 5265113-3 (Version None)
Quarter: 2007Q1

REPORT INFORMATION
  Report Type: 
  Country: None (occurrence: None)
  Receive Date: 20070314
  Receipt Date: 20070308
  Transmission Date: 20070707
  Serious: Yes (Other)
  Sender: FDA-Public Use
  Company Number: US-JNJFOC-20070302154

PATIENT
  Age: 93 Year
  Sex: Female
  Weight: 61.24 kg

DRUGS (4)
  1. EXTRA STRENGTH TYLENOL [Suspect]
     Route: 048
  2. EXTRA STRENGTH TYLENOL [Suspect]
     Indication: SCIATICA
     Route: 048
  3. BLOOD PRESSURE MEDICATION [Concomitant]
     Indication: HYPERTENSION
  4. SLEEPING PILL [Concomitant]
     Indication: INSOMNIA

REACTIONS (1)
  - BLOOD PRESSURE SYSTOLIC INCREASED [None]
